FAERS Safety Report 4559713-3 (Version None)
Quarter: 2005Q1

REPORT INFORMATION
  Report Type: 
  Country: None (occurrence: None)
  Receive Date: 20050107
  Receipt Date: 20041116
  Transmission Date: 20050727
  Serious: Yes (Other)
  Sender: FDA-Public Use
  Company Number: HQWYE494917NOV04

PATIENT
  Age: 85 Year
  Sex: Male

DRUGS (7)
  1. CORDARONE [Suspect]
     Indication: ARRHYTHMIA
     Dosage: 200 MG 1X PER 1 DAY, ORAL
     Route: 048
     Dates: start: 20040701, end: 20041101
  2. ASPIRIN [Concomitant]
  3. OMEGA 3 (FISH OIL) [Concomitant]
  4. COUMADIN [Concomitant]
  5. MONOPRIL [Concomitant]
  6. COREG [Concomitant]
  7. PROSCAR [Concomitant]

REACTIONS (1)
  - NEUROPATHY PERIPHERAL [None]
